FAERS Safety Report 15808194 (Version 2)
Quarter: 2019Q1

REPORT INFORMATION
  Report Type: Report from Study
  Country: BR (occurrence: BR)
  Receive Date: 20190110
  Receipt Date: 20190205
  Transmission Date: 20190417
  Serious: Yes (Other)
  Sender: FDA-Public Use
  Company Number: BR-JNJFOC-20181014939

PATIENT
  Age: 35 Year
  Sex: Female

DRUGS (13)
  1. STELARA [Suspect]
     Active Substance: USTEKINUMAB
     Indication: CROHN^S DISEASE
     Route: 058
  2. STELARA [Suspect]
     Active Substance: USTEKINUMAB
     Indication: CROHN^S DISEASE
     Dosage: 2 VIALS ON WEEK 0 INTRAVENOUS
     Route: 058
     Dates: start: 20180920
  3. BISOPROLOL [Concomitant]
     Active Substance: BISOPROLOL
     Route: 065
  4. INFLIXIMAB [Suspect]
     Active Substance: INFLIXIMAB
     Indication: PRODUCT USED FOR UNKNOWN INDICATION
     Route: 042
  5. SULFASALAZINE. [Concomitant]
     Active Substance: SULFASALAZINE
     Route: 065
  6. AZATHIOPRINE. [Concomitant]
     Active Substance: AZATHIOPRINE
     Dosage: 2 TABLETS IN THE MORNING
     Route: 065
  7. VITAMIN D [Concomitant]
     Active Substance: CHOLECALCIFEROL
     Route: 065
  8. STELARA [Suspect]
     Active Substance: USTEKINUMAB
     Indication: CROHN^S DISEASE
     Route: 058
  9. ALENDRONATE [Concomitant]
     Active Substance: ALENDRONATE SODIUM
     Route: 065
  10. FOLIC ACID. [Concomitant]
     Active Substance: FOLIC ACID
     Route: 065
  11. CALCIUM [Concomitant]
     Active Substance: CALCIUM
     Route: 065
  12. CALCIUM CARBONATE. [Concomitant]
     Active Substance: CALCIUM CARBONATE
     Dosage: 1 TABLET
     Route: 065
  13. DESOGESTREL [Concomitant]
     Active Substance: DESOGESTREL
     Route: 065

REACTIONS (12)
  - Rectal haemorrhage [Unknown]
  - Nausea [Not Recovered/Not Resolved]
  - Blister [Unknown]
  - Weight decreased [Unknown]
  - Memory impairment [Unknown]
  - Peripheral swelling [Not Recovered/Not Resolved]
  - Vomiting [Unknown]
  - Anaemia [Recovering/Resolving]
  - Stress [Unknown]
  - Acarodermatitis [Recovering/Resolving]
  - Abdominal pain upper [Unknown]
  - Arthralgia [Not Recovered/Not Resolved]

NARRATIVE: CASE EVENT DATE: 201901
